FAERS Safety Report 4592819-1 (Version None)
Quarter: 2005Q1

REPORT INFORMATION
  Report Type: 
  Country: None (occurrence: None)
  Receive Date: 20050228
  Receipt Date: 20040511
  Transmission Date: 20050727
  Serious: Yes (Hospitalization, Disabling)
  Sender: FDA-Public Use
  Company Number: US-GLAXOSMITHKLINE-A0510865A

PATIENT
  Sex: Male
  Weight: 3.9 kg

DRUGS (2)
  1. CONTAC [Suspect]
     Route: 048
  2. TRIAMINIC [Suspect]

REACTIONS (7)
  - ATROPHY [None]
  - CEREBROVASCULAR ACCIDENT [None]
  - CONVULSION [None]
  - FALL [None]
  - HEAD INJURY [None]
  - HEMIPARESIS [None]
  - MIGRAINE [None]
